FAERS Safety Report 25959709 (Version 1)
Quarter: 2025Q4

REPORT INFORMATION
  Report Type: Spontaneous
  Country: US (occurrence: US)
  Receive Date: 20251026
  Receipt Date: 20251026
  Transmission Date: 20260118
  Serious: No
  Sender: ELI LILLY AND COMPANY
  Company Number: US-ELI_LILLY_AND_COMPANY-US202510016977

PATIENT
  Age: 60 Year
  Sex: Female

DRUGS (3)
  1. TRULICITY [Suspect]
     Active Substance: DULAGLUTIDE
     Indication: Product used for unknown indication
     Dosage: UNK UNK, UNKNOWN
     Route: 065
     Dates: start: 2023
  2. CYMBALTA [Suspect]
     Active Substance: DULOXETINE HYDROCHLORIDE
     Indication: Product used for unknown indication
     Dosage: UNK UNK, UNKNOWN
     Route: 065
  3. PROZAC [Suspect]
     Active Substance: FLUOXETINE HYDROCHLORIDE
     Indication: Product used for unknown indication
     Dosage: 40 MG, DAILY
     Route: 065

REACTIONS (15)
  - Food craving [Unknown]
  - Thirst [Unknown]
  - Sinus congestion [Unknown]
  - Tenderness [Unknown]
  - Type 2 diabetes mellitus [Unknown]
  - Weight increased [Unknown]
  - Headache [Unknown]
  - Head discomfort [Unknown]
  - Irritability [Unknown]
  - Hypoglycaemia [Unknown]
  - Hypersensitivity [Unknown]
  - Fatigue [Unknown]
  - Drug ineffective [Unknown]
  - Diarrhoea [Unknown]
  - Nausea [Unknown]
